FAERS Safety Report 7294185-X (Version None)
Quarter: 2011Q1

REPORT INFORMATION
  Report Type: 
  Country: None (occurrence: None)
  Receive Date: 20110215
  Receipt Date: 20110201
  Transmission Date: 20110831
  Serious: Yes (Death)
  Sender: FDA-Public Use
  Company Number: US-CELGENEUS-163-21880-10112763

PATIENT
  Sex: Female

DRUGS (9)
  1. ASCORBIC ACID [Concomitant]
     Route: 048
  2. REVLIMID [Suspect]
     Route: 048
     Dates: start: 20091001
  3. IRON [Concomitant]
     Route: 048
  4. REVLIMID [Suspect]
     Route: 048
     Dates: start: 20090601, end: 20090101
  5. ASPIRIN [Concomitant]
     Route: 048
  6. REVLIMID [Suspect]
     Indication: MYELODYSPLASTIC SYNDROME
     Route: 048
     Dates: start: 20081112
  7. REVLIMID [Suspect]
     Route: 048
     Dates: start: 20100101, end: 20100101
  8. REVLIMID [Suspect]
     Route: 048
     Dates: start: 20090101, end: 20090101
  9. REVLIMID [Suspect]
     Route: 048
     Dates: start: 20090301, end: 20090101

REACTIONS (1)
  - NEOPLASM PROGRESSION [None]
